FAERS Safety Report 13880913 (Version 1)
Quarter: 2017Q3

REPORT INFORMATION
  Report Type: Report from Study
  Country: None (occurrence: US)
  Receive Date: 20170818
  Receipt Date: 20170818
  Transmission Date: 20171127
  Serious: Yes (Hospitalization)
  Sender: FDA-Public Use
  Company Number: US-ABBVIE-17K-163-1981508-00

PATIENT
  Age: 59 Year
  Sex: Female
  Weight: 63.11 kg

DRUGS (4)
  1. IRON [Concomitant]
     Active Substance: IRON
     Indication: COLITIS ULCERATIVE
  2. HUMIRA [Suspect]
     Active Substance: ADALIMUMAB
     Indication: COLITIS ULCERATIVE
     Route: 058
     Dates: start: 201702, end: 201704
  3. QUETIAPINE. [Concomitant]
     Active Substance: QUETIAPINE
     Indication: OBSESSIVE-COMPULSIVE DISORDER
  4. INDERAL [Concomitant]
     Active Substance: PROPRANOLOL HYDROCHLORIDE
     Indication: MITRAL VALVE PROLAPSE

REACTIONS (4)
  - Paraesthesia [Not Recovered/Not Resolved]
  - Gait disturbance [Recovering/Resolving]
  - Central nervous system inflammation [Recovered/Resolved]
  - Headache [Recovered/Resolved]

NARRATIVE: CASE EVENT DATE: 201704
